FAERS Safety Report 18074347 (Version 1)
Quarter: 2020Q3

REPORT INFORMATION
  Report Type: Report from Study
  Country: US (occurrence: US)
  Receive Date: 20200727
  Receipt Date: 20200727
  Transmission Date: 20201103
  Serious: Yes (Hospitalization)
  Sender: FDA-Public Use
  Company Number: US-BAYER-2020-144575

PATIENT
  Age: 89 Year
  Sex: Female

DRUGS (1)
  1. STIVARGA [Suspect]
     Active Substance: REGORAFENIB
     Indication: COLORECTAL CANCER
     Dosage: DAILY DOSE 80 MG ON DAYS 1 THROUGH 21, THEN OFF FOR 1 WEEK
     Route: 048
     Dates: start: 20200704, end: 202007

REACTIONS (3)
  - Decreased appetite [Not Recovered/Not Resolved]
  - Off label use [None]
  - Feeding disorder [Not Recovered/Not Resolved]

NARRATIVE: CASE EVENT DATE: 202007
